FAERS Safety Report 10812267 (Version 2)
Quarter: 2015Q1

REPORT INFORMATION
  Report Type: Spontaneous
  Country: US (occurrence: US)
  Receive Date: 20150218
  Receipt Date: 20150309
  Transmission Date: 20150721
  Serious: No
  Sender: FDA-Public Use
  Company Number: US-ASTRAZENECA-2015SE13776

PATIENT
  Sex: Female
  Weight: 68 kg

DRUGS (1)
  1. ARIMIDEX [Suspect]
     Active Substance: ANASTROZOLE
     Indication: BREAST CANCER
     Route: 048
     Dates: start: 201311

REACTIONS (7)
  - Dyspnoea [Unknown]
  - Cough [Unknown]
  - Oropharyngeal pain [Unknown]
  - Insomnia [Unknown]
  - Bone pain [Unknown]
  - Weight increased [Unknown]
  - Alopecia [Unknown]
